FAERS Safety Report 19467681 (Version 1)
Quarter: 2021Q2

REPORT INFORMATION
  Report Type: Spontaneous
  Country: US (occurrence: US)
  Receive Date: 20210626
  Receipt Date: 20210626
  Transmission Date: 20210717
  Serious: Yes (Hospitalization)
  Sender: FDA-Public Use
  Company Number: None

PATIENT
  Age: 63 Year
  Sex: Female
  Weight: 93.4 kg

DRUGS (1)
  1. DEXAMETHASONE. [Suspect]
     Active Substance: DEXAMETHASONE
     Dates: end: 20210507

REACTIONS (8)
  - Sciatica [None]
  - Radiculopathy [None]
  - Back pain [None]
  - Gait disturbance [None]
  - Intervertebral disc protrusion [None]
  - Stress fracture [None]
  - Fractured sacrum [None]
  - Condition aggravated [None]

NARRATIVE: CASE EVENT DATE: 20210531
